FAERS Safety Report 5886152-5 (Version None)
Quarter: 2008Q3

REPORT INFORMATION
  Report Type: 
  Country: None (occurrence: None)
  Receive Date: 20080917
  Receipt Date: 20080911
  Transmission Date: 20090109
  Serious: Yes (Hospitalization)
  Sender: FDA-Public Use
  Company Number: US-BRISTOL-MYERS SQUIBB COMPANY-14328736

PATIENT
  Age: 42 Year
  Sex: Female
  Weight: 56 kg

DRUGS (3)
  1. CETUXIMAB [Suspect]
     Indication: LARYNGEAL CANCER
     Dosage: INITIATED FIRST COURSE 15JUL08
     Dates: start: 20080825, end: 20080825
  2. CISPLATIN [Suspect]
     Indication: LARYNGEAL CANCER
     Dosage: INITIATED FIRST COURSE 15JUL08
     Dates: start: 20080811, end: 20080811
  3. RADIATION THERAPY [Suspect]
     Indication: LARYNGEAL CANCER
     Dosage: 1 DOSAGE FORM= 70GY NUMBER OF FRACIONS = 35
     Dates: start: 20080829, end: 20080829

REACTIONS (7)
  - BLOOD POTASSIUM DECREASED [None]
  - DEHYDRATION [None]
  - DYSPHAGIA [None]
  - NAUSEA [None]
  - PAIN [None]
  - RASH [None]
  - VOMITING [None]
